FAERS Safety Report 4633249-3 (Version None)
Quarter: 2005Q2

REPORT INFORMATION
  Report Type: 
  Country: None (occurrence: None)
  Receive Date: 20050408
  Receipt Date: 20050326
  Transmission Date: 20051028
  Serious: Yes (Hospitalization)
  Sender: FDA-Public Use
  Company Number: 2005046454

PATIENT
  Age: 65 Year
  Sex: Male

DRUGS (2)
  1. CABERGOLINE [Suspect]
     Indication: PARKINSON'S DISEASE
     Dosage: 3 MG, ORAL
     Route: 048
  2. LEBOCAR (CARBIDOPA, LEVODOPA) [Suspect]
     Indication: PARKINSON'S DISEASE
     Dosage: THREE TABLETS, OPHTHALMIC
     Route: 047

REACTIONS (4)
  - ASPIRATION [None]
  - PERSECUTORY DELUSION [None]
  - SOMATIC HALLUCINATION [None]
  - THERAPY NON-RESPONDER [None]
